FAERS Safety Report 21692782 (Version 1)
Quarter: 2022Q4

REPORT INFORMATION
  Report Type: Spontaneous
  Country: FR (occurrence: FR)
  Receive Date: 20221207
  Receipt Date: 20221207
  Transmission Date: 20230113
  Serious: Yes (Death, Other)
  Sender: FDA-Public Use
  Company Number: FR-BAXTER-2022BAX026299

PATIENT
  Age: 77 Year
  Sex: Male

DRUGS (3)
  1. CYCLOPHOSPHAMIDE [Suspect]
     Active Substance: CYCLOPHOSPHAMIDE
     Indication: Product used for unknown indication
     Dosage: 500 MG/DOSE 1 DOSE(S)/WEEK 2 WEEK(S)/CYCLE, TREATMENT LINE 1, DURATION 5.8 MONTHS
     Route: 065
     Dates: end: 20200328
  2. BORTEZOMIB [Suspect]
     Active Substance: BORTEZOMIB
     Indication: Product used for unknown indication
     Dosage: 2.4 MG/DOSE 1 DOSE(S)/WEEK 4 WEEK(S)/CYCLE, TREATMENT LINE 1, DURATION: 5.8 MONTHS
     Route: 065
     Dates: end: 20200328
  3. DEXAMETHASONE [Suspect]
     Active Substance: DEXAMETHASONE
     Indication: Product used for unknown indication
     Dosage: 40 MG/DOSE 2 DOSE(S)/WEEK 4 WEEK(S)/CYCLE, TREATMENT LINE 1, DURATION: 5.8 MONTHS
     Route: 065
     Dates: end: 20200328

REACTIONS (1)
  - Death [Fatal]
